FAERS Safety Report 7686649-1 (Version None)
Quarter: 2011Q3

REPORT INFORMATION
  Report Type: 
  Country: None (occurrence: None)
  Receive Date: 20110816
  Receipt Date: 20110816
  Transmission Date: 20111222
  Serious: Yes (Hospitalization)
  Sender: FDA-Public Use
  Company Number: None

PATIENT
  Age: 88 Year
  Sex: Female
  Weight: 43.544 kg

DRUGS (3)
  1. ASPIRIN [Concomitant]
     Route: 048
  2. CEFTRIAXONE (ROCEPHIN) [Suspect]
     Indication: URINARY TRACT INFECTION
     Dosage: 1 GRAM
     Route: 041
     Dates: start: 20101106, end: 20101110
  3. SYNTHROID [Concomitant]
     Route: 048

REACTIONS (2)
  - DIARRHOEA [None]
  - FAECAL INCONTINENCE [None]
